FAERS Safety Report 19159520 (Version 2)
Quarter: 2021Q3

REPORT INFORMATION
  Report Type: Spontaneous
  Country: IT (occurrence: IT)
  Receive Date: 20210420
  Receipt Date: 20210813
  Transmission Date: 20211014
  Serious: Yes (Hospitalization, Other)
  Sender: FDA-Public Use
  Company Number: IT-VISTAPHARM, INC.-VER202104-001143

PATIENT
  Age: 41 Year
  Sex: Female

DRUGS (1)
  1. METHADONE [Suspect]
     Active Substance: METHADONE HYDROCHLORIDE
     Indication: DRUG ABUSE
     Dosage: 100 MG/DAY
     Route: 065

REACTIONS (6)
  - Stress cardiomyopathy [Recovered/Resolved]
  - Cardiac failure [Recovered/Resolved]
  - Mydriasis [Recovered/Resolved]
  - Respiratory distress [Recovered/Resolved]
  - Lacrimation increased [Recovered/Resolved]
  - Diarrhoea [Recovered/Resolved]
